FAERS Safety Report 7293424-9 (Version None)
Quarter: 2011Q1

REPORT INFORMATION
  Report Type: 
  Country: None (occurrence: None)
  Receive Date: 20110204
  Receipt Date: 20110120
  Transmission Date: 20110831
  Serious: Yes (Hospitalization)
  Sender: FDA-Public Use
  Company Number: IPC201101-000025

PATIENT
  Age: 59 Year
  Sex: Female

DRUGS (4)
  1. SIMVASTATIN [Suspect]
     Dosage: 20 MG ONCE DAILY
  2. CALCIUM CITRATE SUPPLEMENTS [Suspect]
     Dosage: TWICE DAILY
  3. LEVOTHYROXINE [Suspect]
     Dosage: 75 MICROGRAM ONCE DAILY
  4. HYDROCHLOROTHIAZIDE [Suspect]
     Dosage: 50 MG DAILY

REACTIONS (13)
  - SOMNOLENCE [None]
  - LETHARGY [None]
  - MUCOSAL DRYNESS [None]
  - ELECTROCARDIOGRAM QT PROLONGED [None]
  - BLOOD SODIUM DECREASED [None]
  - BLOOD GLUCOSE INCREASED [None]
  - BLOOD POTASSIUM DECREASED [None]
  - PANCREATITIS ACUTE [None]
  - SKIN TURGOR DECREASED [None]
  - BLOOD UREA INCREASED [None]
  - HYPERCALCAEMIA [None]
  - HYPERREFLEXIA [None]
  - BLOOD CREATININE INCREASED [None]
